FAERS Safety Report 8398104-4 (Version None)
Quarter: 2012Q2

REPORT INFORMATION
  Report Type: 
  Country: None (occurrence: None)
  Receive Date: 20120524
  Receipt Date: 20120514
  Transmission Date: 20120825
  Serious: Yes (Hospitalization)
  Sender: FDA-Public Use
  Company Number: 2012SP025892

PATIENT
  Age: 53 Year
  Sex: Female

DRUGS (9)
  1. RIBASPHERE [Suspect]
     Indication: PRODUCT USED FOR UNKNOWN INDICATION
  2. VICTRELIS [Suspect]
     Indication: HEPATITIS C
     Dosage: 800 MG;TID;PO
     Route: 048
     Dates: start: 20120301
  3. ATENOLOL [Concomitant]
  4. CHLORTHALIDONE [Concomitant]
  5. CYMBALTA [Concomitant]
  6. POTASSIUM CHLORIDE [Concomitant]
  7. PEGASYS [Suspect]
     Indication: PRODUCT USED FOR UNKNOWN INDICATION
  8. LANSOPRAZOLE [Concomitant]
  9. GABAPENTIN [Concomitant]

REACTIONS (4)
  - NO THERAPEUTIC RESPONSE [None]
  - BRONCHITIS [None]
  - BLOOD POTASSIUM INCREASED [None]
  - BLOOD POTASSIUM DECREASED [None]
